FAERS Safety Report 10228156 (Version 1)
Quarter: 2014Q2

REPORT INFORMATION
  Report Type: Spontaneous
  Country: US (occurrence: US)
  Receive Date: 20140610
  Receipt Date: 20140610
  Transmission Date: 20141212
  Serious: No
  Sender: FDA-Public Use
  Company Number: US-PFIZER INC-2014157118

PATIENT
  Age: 65 Year
  Sex: Female
  Weight: 59.41 kg

DRUGS (15)
  1. XELJANZ [Suspect]
     Indication: RHEUMATOID ARTHRITIS
     Dosage: 5 MG, 2X/DAY
     Route: 048
     Dates: start: 201403, end: 201405
  2. ALPRAZOLAM [Concomitant]
     Indication: ANXIETY
     Dosage: 1 MG, 1X/DAY
  3. BACLOFEN [Concomitant]
     Indication: MUSCLE SPASMS
     Dosage: 10 MG, 4X/DAY
  4. PREMARIN [Concomitant]
     Indication: HORMONE REPLACEMENT THERAPY
     Dosage: 6.25 MG, 1X/DAY
  5. CYMBALTA [Concomitant]
     Indication: PAIN
     Dosage: 60 MG, 1X/DAY
  6. FOLIC ACID [Concomitant]
     Dosage: 1 MG, 6X/WEEK
  7. LEVOTHYROXINE [Concomitant]
     Indication: HYPOTHYROIDISM
     Dosage: 75 UG, 1X/DAY
     Route: 048
  8. LISINOPRIL [Concomitant]
     Indication: HYPERTENSION
     Dosage: 10 MG, 1X/DAY
  9. LORATADINE [Concomitant]
     Indication: HYPERSENSITIVITY
     Dosage: 10 MG, 1X/DAY
  10. METHOTREXATE [Concomitant]
     Indication: ARTHRITIS
     Dosage: 7.5 MG, WEEKLY
     Route: 048
  11. NIFEDICAL [Concomitant]
     Indication: CARDIAC DISORDER
     Dosage: 30 MG, 1X/DAY
     Route: 048
  12. TEMAZEPAM [Concomitant]
     Dosage: 30 MG, AS NEEDED
     Route: 048
  13. DOXOFYLLINE [Concomitant]
     Indication: CARDIOVASCULAR DISORDER
     Dosage: 400 MG, 2X/DAY
  14. OXYCODONE [Concomitant]
     Indication: PAIN
     Dosage: 15 MG, 6X/DAY
  15. PRILOSEC [Concomitant]
     Indication: GASTROOESOPHAGEAL REFLUX DISEASE
     Dosage: 40 MG, 1X/DAY

REACTIONS (1)
  - Diarrhoea [Not Recovered/Not Resolved]
